FAERS Safety Report 23547248 (Version 2)
Quarter: 2024Q1

REPORT INFORMATION
  Report Type: Report from Study
  Country: US (occurrence: US)
  Receive Date: 20240221
  Receipt Date: 20240228
  Transmission Date: 20240410
  Serious: Yes (Other)
  Sender: FDA-Public Use
  Company Number: US-ABBVIE-5539489

PATIENT
  Age: 72 Year
  Sex: Male

DRUGS (2)
  1. DUOPA [Suspect]
     Active Substance: CARBIDOPA\LEVODOPA
     Indication: Product used for unknown indication
     Route: 050
     Dates: start: 20181002
  2. DUOPA [Suspect]
     Active Substance: CARBIDOPA\LEVODOPA

REACTIONS (21)
  - Spinal operation [Unknown]
  - Anxiety [Unknown]
  - Device issue [Recovering/Resolving]
  - Oropharyngeal pain [Unknown]
  - Stoma site discharge [Unknown]
  - Stoma complication [Unknown]
  - Increased upper airway secretion [Unknown]
  - Device placement issue [Unknown]
  - Malaise [Unknown]
  - Fatigue [Unknown]
  - Unevaluable event [Unknown]
  - Communication disorder [Unknown]
  - Device breakage [Unknown]
  - Lethargy [Unknown]
  - Stoma site haemorrhage [Unknown]
  - Cough [Unknown]
  - Aspiration [Unknown]
  - Dysphagia [Unknown]
  - Throat irritation [Unknown]
  - Fatigue [Unknown]
  - Device leakage [Unknown]

NARRATIVE: CASE EVENT DATE: 20240101
